FAERS Safety Report 5106738-5 (Version None)
Quarter: 2006Q3

REPORT INFORMATION
  Report Type: 
  Country: None (occurrence: None)
  Receive Date: 20060731
  Receipt Date: 20050907
  Transmission Date: 20061208
  Serious: Yes (Hospitalization, Other)
  Sender: FDA-Public Use
  Company Number: US-JNJFOC-20050803990

PATIENT
  Age: 39 Year
  Sex: Male
  Weight: 74.3899 kg

DRUGS (7)
  1. RISPERDAL [Suspect]
     Indication: PSYCHOTIC DISORDER
     Dosage: 3 MG, 1 IN 1 DAY
     Dates: start: 19990101
  2. RISPERDAL [Suspect]
     Indication: SCHIZOPHRENIA
     Dosage: 3 MG, 1 IN 1 DAY
     Dates: start: 19990101
  3. PEGASYS (ANTIVIRALS FOR SYSTEMIC USE) [Concomitant]
  4. RIBASPHERE [Concomitant]
  5. BUSPAR [Concomitant]
  6. KEPPRA [Concomitant]
  7. ESCITALOPRAM (SSRI) [Concomitant]

REACTIONS (2)
  - OVERDOSE [None]
  - SUICIDE ATTEMPT [None]
